FAERS Safety Report 24716986 (Version 7)
Quarter: 2025Q1

REPORT INFORMATION
  Report Type: Spontaneous
  Country: GB (occurrence: GB)
  Receive Date: 20241210
  Receipt Date: 20250320
  Transmission Date: 20250408
  Serious: Yes (Death, Life-Threatening, Hospitalization, Other)
  Sender: MYLAN
  Company Number: GB-MYLANLABS-2024M1110164

PATIENT
  Sex: Male

DRUGS (1)
  1. CLOZARIL [Suspect]
     Active Substance: CLOZAPINE
     Indication: Schizophrenia

REACTIONS (11)
  - Death [Fatal]
  - Hepatic cancer metastatic [Unknown]
  - Terminal state [Unknown]
  - Anaemia [Unknown]
  - Leukocytosis [Unknown]
  - Neutrophilia [Unknown]
  - Mental impairment [Unknown]
  - Inflammation [Unknown]
  - Differential white blood cell count abnormal [Unknown]
  - Infection [Unknown]
  - Treatment noncompliance [Unknown]

NARRATIVE: CASE EVENT DATE: 20241204
